FAERS Safety Report 7104831-9 (Version None)
Quarter: 2010Q4

REPORT INFORMATION
  Report Type: 
  Country: None (occurrence: None)
  Receive Date: 20101116
  Receipt Date: 20101105
  Transmission Date: 20110411
  Serious: Yes (Hospitalization)
  Sender: FDA-Public Use
  Company Number: US-JNJFOC-20101104408

PATIENT
  Sex: Female
  Weight: 47.63 kg

DRUGS (13)
  1. FENTANYL [Suspect]
     Indication: PAIN
     Route: 062
  2. FENTANYL [Suspect]
     Route: 062
  3. FENTANYL [Suspect]
     Indication: ARTHRITIS
     Route: 062
  4. FENTANYL [Suspect]
     Route: 062
  5. FENTANYL [Suspect]
     Indication: OSTEOARTHRITIS
     Route: 062
  6. FENTANYL [Suspect]
     Route: 062
  7. FENTANYL [Suspect]
     Indication: PAIN
     Route: 062
  8. FENTANYL [Suspect]
     Indication: ARTHRITIS
     Route: 062
  9. FENTANYL [Suspect]
     Indication: OSTEOARTHRITIS
     Route: 062
  10. UNKNOWN MEDICATION [Concomitant]
     Route: 065
  11. ALLOPURINOL [Concomitant]
     Indication: GOUT
     Route: 065
  12. GAS X [Concomitant]
     Route: 065
  13. LAXATIVES [Concomitant]
     Route: 065

REACTIONS (10)
  - ABDOMINAL DISTENSION [None]
  - CHOLELITHIASIS [None]
  - CONSTIPATION [None]
  - DECREASED APPETITE [None]
  - DRUG INEFFECTIVE [None]
  - FATIGUE [None]
  - FLATULENCE [None]
  - GASTRIC DISORDER [None]
  - SOMNOLENCE [None]
  - WEIGHT DECREASED [None]
